FAERS Safety Report 9149633 (Version 2)
Quarter: 2013Q2

REPORT INFORMATION
  Report Type: Spontaneous
  Country: JP (occurrence: JP)
  Receive Date: 20130308
  Receipt Date: 20130612
  Transmission Date: 20140414
  Serious: Yes (Hospitalization, Other)
  Sender: FDA-Public Use
  Company Number: JP-SANOFI-AVENTIS-2013SA021969

PATIENT
  Age: 66 Year
  Sex: Female

DRUGS (4)
  1. MYSLEE [Suspect]
     Indication: SUICIDE ATTEMPT
     Dosage: 10 MG TABLET
     Route: 048
  2. METFORMIN [Concomitant]
     Indication: TYPE 2 DIABETES MELLITUS
     Route: 048
  3. INSULIN [Concomitant]
  4. DIAZEPAM [Concomitant]
     Indication: CONVULSION

REACTIONS (5)
  - Stress cardiomyopathy [Recovering/Resolving]
  - Lactic acidosis [Recovering/Resolving]
  - Suicide attempt [Unknown]
  - Hypoxia [Recovered/Resolved]
  - Intentional overdose [Unknown]
